FAERS Safety Report 6214606-0 (Version None)
Quarter: 2009Q2

REPORT INFORMATION
  Report Type: 
  Country: None (occurrence: None)
  Receive Date: 20090604
  Receipt Date: 20090522
  Transmission Date: 20091009
  Serious: Yes (Other)
  Sender: FDA-Public Use
  Company Number: GB-PFIZER INC-2009220086

PATIENT

DRUGS (1)
  1. NICOTINE [Suspect]
     Dosage: UNK

REACTIONS (1)
  - GINGIVAL BLEEDING [None]
